FAERS Safety Report 5378155-4 (Version None)
Quarter: 2007Q3

REPORT INFORMATION
  Report Type: 
  Country: None (occurrence: None)
  Receive Date: 20070705
  Receipt Date: 20070628
  Transmission Date: 20080115
  Serious: Yes (Death, Life-Threatening, Hospitalization)
  Sender: FDA-Public Use
  Company Number: PHBS2007US10995

PATIENT
  Age: 69 Year
  Sex: Male

DRUGS (4)
  1. CYCLOSPORINE [Suspect]
     Indication: RENAL TRANSPLANT
     Route: 065
     Dates: start: 20011101
  2. SIROLIMUS [Suspect]
     Indication: RENAL TRANSPLANT
     Dates: start: 20030101
  3. MYCOPHENOLATE MOFETIL [Concomitant]
     Indication: RENAL TRANSPLANT
     Dosage: UNK, UNK
     Route: 065
     Dates: start: 20030101, end: 20030101
  4. PREDNISONE TAB [Suspect]
     Indication: RENAL TRANSPLANT
     Route: 065
     Dates: start: 20011101

REACTIONS (22)
  - ABDOMINAL DISCOMFORT [None]
  - ABDOMINAL PAIN UPPER [None]
  - CARDIAC FAILURE [None]
  - CARDIAC FAILURE CONGESTIVE [None]
  - CARDIAC TAMPONADE [None]
  - CARDIOMEGALY [None]
  - CHILLS [None]
  - CYST RUPTURE [None]
  - DIALYSIS [None]
  - DIVERTICULAR PERFORATION [None]
  - DYSPNOEA [None]
  - ENTEROCOCCAL INFECTION [None]
  - ESCHERICHIA INFECTION [None]
  - HEPATECTOMY [None]
  - HEPATIC CYST INFECTION [None]
  - HYPOTENSION [None]
  - PERICARDIAL DRAINAGE [None]
  - PERITONITIS [None]
  - PULMONARY CONGESTION [None]
  - PYREXIA [None]
  - RENAL FAILURE ACUTE [None]
  - SEPSIS [None]
